FAERS Safety Report 20557327 (Version 1)
Quarter: 2022Q1

REPORT INFORMATION
  Report Type: Spontaneous
  Country: US (occurrence: US)
  Receive Date: 20220307
  Receipt Date: 20220307
  Transmission Date: 20220424
  Serious: No
  Sender: FDA-Public Use
  Company Number: US-PFIZER INC-2021606383

PATIENT
  Age: 34 Year
  Sex: Male

DRUGS (1)
  1. FRAGMIN [Suspect]
     Active Substance: DALTEPARIN SODIUM
     Dosage: 18000 IU, DAILY/0.72 ML INJECTION
     Route: 058

REACTIONS (3)
  - Drug hypersensitivity [Unknown]
  - Illness [Unknown]
  - Decreased appetite [Unknown]
